FAERS Safety Report 8487062-X (Version None)
Quarter: 2012Q3

REPORT INFORMATION
  Report Type: 
  Country: None (occurrence: None)
  Receive Date: 20120704
  Receipt Date: 20120628
  Transmission Date: 20120928
  Serious: Yes (Hospitalization)
  Sender: FDA-Public Use
  Company Number: PHHY2010JP55568

PATIENT
  Sex: Male

DRUGS (7)
  1. MAGMITT [Concomitant]
     Indication: CONSTIPATION
     Dosage: 500 MG, DAILY
     Route: 048
     Dates: end: 20100727
  2. SHAKUYAKUKANZOUTOU [Concomitant]
     Indication: PROPHYLAXIS
     Dosage: 7.5 G, DAILY
     Route: 048
     Dates: start: 20091030
  3. DIFLUCAN [Concomitant]
     Indication: PROPHYLAXIS
     Dosage: 100 MG, DAILY
     Route: 048
     Dates: end: 20100727
  4. TASIGNA [Suspect]
     Indication: CHRONIC MYELOID LEUKAEMIA
     Dosage: 400 MG, DAILY
     Route: 048
     Dates: start: 20090911, end: 20100727
  5. ALLOPURINOL [Concomitant]
     Indication: HYPERURICAEMIA
     Dosage: 100 MG, DAILY
     Route: 048
     Dates: end: 20100727
  6. LANSOPRAZOLE [Concomitant]
     Indication: GASTRITIS
     Dosage: 15 MG, DAILY
     Route: 048
     Dates: end: 20100727
  7. LOXOPROFEN [Concomitant]
     Indication: BACK PAIN
     Dosage: UNK UKN, UNK
     Route: 048
     Dates: end: 20100727

REACTIONS (1)
  - INTERSTITIAL LUNG DISEASE [None]
